FAERS Safety Report 5487519-X (Version None)
Quarter: 2007Q4

REPORT INFORMATION
  Report Type: 
  Country: None (occurrence: None)
  Receive Date: 20071016
  Receipt Date: 20071004
  Transmission Date: 20080405
  Serious: Yes (Other)
  Sender: FDA-Public Use
  Company Number: US-PFIZER INC-2007083985

PATIENT
  Age: 36 Year
  Sex: Female

DRUGS (3)
  1. SOLU-CORTEF [Suspect]
     Route: 042
  2. CORTISONE ACETATE [Suspect]
     Route: 030
  3. AMINOPHYLLINE [Concomitant]

REACTIONS (3)
  - DYSPNOEA [None]
  - OEDEMA [None]
  - SKIN BURNING SENSATION [None]
